FAERS Safety Report 11970019 (Version 1)
Quarter: 2016Q1

REPORT INFORMATION
  Report Type: Spontaneous
  Country: US (occurrence: US)
  Receive Date: 20160128
  Receipt Date: 20160128
  Transmission Date: 20160526
  Serious: Yes (Hospitalization, Other)
  Sender: FDA-Public Use
  Company Number: US-PROCTER+GAMBLE TECHNICAL CENTRES LTD-GS16007096

PATIENT
  Sex: Female

DRUGS (1)
  1. DAYQUIL NOS [Suspect]
     Active Substance: ACETAMINOPHEN\BROMPHENIRAMINE\CHLORPHENIRAMINE\DEXTROMETHORPHAN\GUAIFENESIN\IBUPROFEN\PHENYLEPHRINE\PHENYLPROPANOLAMINE\PSEUDOEPHEDRINE
     Dosage: UNKNOWN
     Route: 048
     Dates: start: 201011

REACTIONS (3)
  - Movement disorder [Unknown]
  - Influenza like illness [Unknown]
  - Blister [Unknown]

NARRATIVE: CASE EVENT DATE: 201011
